FAERS Safety Report 17645926 (Version 1)
Quarter: 2020Q2

REPORT INFORMATION
  Report Type: Spontaneous
  Country: CA (occurrence: CA)
  Receive Date: 20200408
  Receipt Date: 20200408
  Transmission Date: 20200713
  Serious: Yes (Other)
  Sender: FDA-Public Use
  Company Number: CA-TEVA-2020-CA-1219607

PATIENT
  Age: 76 Year
  Sex: Female

DRUGS (5)
  1. HYDROXOCOBALAMIN ACETATE. [Concomitant]
     Active Substance: HYDROXOCOBALAMIN ACETATE
  2. GABAPENTIN. [Suspect]
     Active Substance: GABAPENTIN
     Indication: NEUROPATHY PERIPHERAL
     Dosage: 1800 MILLIGRAM DAILY;
     Route: 048
  3. ERGOCALCIFEROL. [Concomitant]
     Active Substance: ERGOCALCIFEROL
  4. GABAPENTIN. [Suspect]
     Active Substance: GABAPENTIN
     Indication: RESTLESS LEGS SYNDROME
     Route: 065
  5. CALCIUM DPANTOTHENATE/NICOTINAMIDE/PYRIDOXINE HYDROCHLORIDE/RIBOFLAVIN [Concomitant]

REACTIONS (9)
  - Neuropathy peripheral [Unknown]
  - Frustration tolerance decreased [Unknown]
  - Mood altered [Unknown]
  - Anxiety [Unknown]
  - Nervousness [Unknown]
  - Off label use [Unknown]
  - Violence-related symptom [Unknown]
  - Restless legs syndrome [Unknown]
  - Product use in unapproved indication [Unknown]
